FAERS Safety Report 5146257-3 (Version None)
Quarter: 2006Q4

REPORT INFORMATION
  Report Type: 
  Country: None (occurrence: None)
  Receive Date: 20061108
  Receipt Date: 20060718
  Transmission Date: 20070319
  Serious: No
  Sender: FDA-Public Use
  Company Number: US-ELI_LILLY_AND_COMPANY-US200607003518

PATIENT
  Age: 48 Year
  Sex: Female
  Weight: 59.863 kg

DRUGS (20)
  1. CYMBALTA [Suspect]
     Indication: FIBROMYALGIA
     Dosage: 40 MG, DAILY (1/D)
     Dates: start: 20060701, end: 20060724
  2. NASONEX [Concomitant]
     Dosage: 2 D/F, AS NEEDED
     Route: 045
  3. QVAR                                    /UNK/ [Concomitant]
     Dosage: 1 D/F, 2/D
     Route: 055
  4. ZANTAC [Concomitant]
     Dosage: 150 MG, 2/D
  5. RITALIN [Concomitant]
     Dosage: 5 MG, 2/D
  6. RITALIN [Concomitant]
     Dosage: 10 MG, 2/D
  7. SKELAXIN [Concomitant]
     Dosage: 400 MG, 2/D
  8. SKELAXIN [Concomitant]
     Dosage: 800 MG, 2/D
  9. CENESTIN [Concomitant]
     Dosage: 0.3 MG, DAILY (1/D)
  10. ABILIFY [Concomitant]
     Dosage: 2.5 MG, DAILY (1/D)
  11. ULTRAM [Concomitant]
     Dosage: 200 MG, 2/D
  12. PROVIGIL [Concomitant]
     Dosage: 350 MG, DAILY (1/D)
  13. DARVOCET [Concomitant]
     Dosage: 1 D/F, UNK
  14. NAPROXEN [Concomitant]
     Dosage: 250 MG, 2/D
  15. PROVERA [Concomitant]
     Dosage: 2.5 MG, DAILY (1/D)
  16. SERZONE [Concomitant]
     Dosage: 50 MG, DAILY (1/D)
  17. LORAZEPAM [Concomitant]
     Dosage: 2 MG, DAILY (1/D)
  18. TOPAMAX                                 /AUS/ [Concomitant]
     Dosage: 100 MG, EACH EVENING
  19. LORATADINE [Concomitant]
     Dosage: 10 MG, DAILY (1/D)
  20. SINGULAIR [Concomitant]
     Dosage: 10 MG, DAILY (1/D)

REACTIONS (6)
  - ALANINE AMINOTRANSFERASE INCREASED [None]
  - ASPARTATE AMINOTRANSFERASE INCREASED [None]
  - CONFUSIONAL STATE [None]
  - FATIGUE [None]
  - NAUSEA [None]
  - SOMNOLENCE [None]
